FAERS Safety Report 5718219-6 (Version None)
Quarter: 2008Q2

REPORT INFORMATION
  Report Type: 
  Country: None (occurrence: None)
  Receive Date: 20080425
  Receipt Date: 20080417
  Transmission Date: 20081010
  Serious: Yes (Other)
  Sender: FDA-Public Use
  Company Number: US-ASTRAZENECA-2008UW07908

PATIENT
  Age: 74 Year
  Sex: Female

DRUGS (8)
  1. NEXIUM [Suspect]
     Indication: REFLUX OESOPHAGITIS
     Route: 048
     Dates: start: 19980101
  2. CELEBREX [Concomitant]
  3. THYROXIN [Concomitant]
  4. FISH OIL [Concomitant]
  5. GENERIC ZYRTEC [Concomitant]
  6. NASAL SPRAY [Concomitant]
  7. COQ [Concomitant]
  8. SIMVUSTATIN [Concomitant]
     Indication: BLOOD CHOLESTEROL

REACTIONS (4)
  - COUGH [None]
  - DIABETES MELLITUS [None]
  - NASAL CONGESTION [None]
  - RHINORRHOEA [None]
